FAERS Safety Report 8493323-0 (Version None)
Quarter: 2012Q2

REPORT INFORMATION
  Report Type: 
  Country: None (occurrence: None)
  Receive Date: 20120628
  Receipt Date: 20120612
  Transmission Date: 20120825
  Serious: Yes (Other)
  Sender: FDA-Public Use
  Company Number: THQ2011A05192

PATIENT
  Age: 63 Year
  Sex: Female

DRUGS (5)
  1. ADCAL-D3 (COLECALCIFEROL, CALCIUM CARBONATE) [Concomitant]
  2. VENTOLIN [Concomitant]
  3. CICLESONIDE [Concomitant]
  4. LOSARTAN POTASSIUM [Concomitant]
  5. LANSOPRAZOLE [Suspect]
     Indication: BARRETT'S OESOPHAGUS
     Dosage: 30 MG (30 MG, 1 IN 1 D), PER ORAL
     Route: 048
     Dates: start: 20110321

REACTIONS (1)
  - BRONCHOPULMONARY ASPERGILLOSIS [None]
